FAERS Safety Report 14150344 (Version 2)
Quarter: 2017Q4

REPORT INFORMATION
  Report Type: Report from Study
  Country: None (occurrence: CA)
  Receive Date: 20171101
  Receipt Date: 20171211
  Transmission Date: 20180321
  Serious: Yes (Hospitalization, Other)
  Sender: FDA-Public Use
  Company Number: CA-ABBVIE-17K-028-2146267-00

PATIENT
  Age: 52 Year
  Sex: Male
  Weight: 86.26 kg

DRUGS (3)
  1. DOXYCYCLINE. [Concomitant]
     Active Substance: DOXYCYCLINE
     Indication: HIDRADENITIS
     Route: 048
     Dates: end: 2017
  2. HUMIRA [Suspect]
     Active Substance: ADALIMUMAB
     Indication: HIDRADENITIS
     Route: 058
     Dates: start: 20161025, end: 20170815
  3. HUMIRA [Suspect]
     Active Substance: ADALIMUMAB
     Route: 058
     Dates: start: 20171025

REACTIONS (3)
  - Beta haemolytic streptococcal infection [Recovering/Resolving]
  - Hidradenitis [Unknown]
  - Wound complication [Recovering/Resolving]

NARRATIVE: CASE EVENT DATE: 2017
